FAERS Safety Report 9252026 (Version 1)
Quarter: 2013Q1

REPORT INFORMATION
  Report Type: Spontaneous
  Country: US (occurrence: None)
  Receive Date: 20130305
  Receipt Date: 20130305
  Transmission Date: 20140127
  Serious: Yes (Other)
  Sender: FDA-Public Use
  Company Number: 163-21880-12091185

PATIENT
  Age: 66 Year
  Sex: Male

DRUGS (4)
  1. REVLIMID (LENALIDOMIDE) (CAPSULES) [Suspect]
     Indication: PLASMA CELL MYELOMA
     Dosage: 14 IN 14 D
     Route: 048
     Dates: start: 20120809
  2. LOVASTATIN (LOVASTATIN) [Suspect]
  3. OMEPRAZOLE (OMEPRAZOLE) [Suspect]
  4. AMBIEN (ZOLPIDEM TARTRATE) [Suspect]

REACTIONS (1)
  - Rash [None]
